FAERS Safety Report 6170296-7 (Version None)
Quarter: 2009Q2

REPORT INFORMATION
  Report Type: 
  Country: None (occurrence: None)
  Receive Date: 20090427
  Receipt Date: 20090427
  Transmission Date: 20091009
  Serious: Yes (Other)
  Sender: FDA-Public Use
  Company Number: None

PATIENT
  Age: 41 Year
  Sex: Female
  Weight: 56.6996 kg

DRUGS (1)
  1. ABILIFY [Suspect]
     Indication: BIPOLAR DISORDER
     Dosage: 30 MG, 20 MG, 10 MG ONCE DAILY  5 MG, 2 MG ONCE DAILY
     Dates: start: 20040101, end: 20090101

REACTIONS (4)
  - AGITATION [None]
  - AKATHISIA [None]
  - IRRITABILITY [None]
  - RESTLESSNESS [None]
